FAERS Safety Report 23368310 (Version 2)
Quarter: 2024Q1

REPORT INFORMATION
  Report Type: Spontaneous
  Country: IN (occurrence: IN)
  Receive Date: 20240105
  Receipt Date: 20240117
  Transmission Date: 20240410
  Serious: Yes (Other)
  Sender: FDA-Public Use
  Company Number: IN-002147023-NVSC2023IN275995

PATIENT
  Age: 87 Year
  Sex: Male
  Weight: 65 kg

DRUGS (2)
  1. RANIBIZUMAB [Suspect]
     Active Substance: RANIBIZUMAB
     Indication: Neovascular age-related macular degeneration
     Dosage: 0.5 MG (AFTER MONTH)
     Route: 050
     Dates: start: 20231027, end: 20231122
  2. RANIBIZUMAB [Suspect]
     Active Substance: RANIBIZUMAB
     Dosage: MONTHLY
     Route: 065

REACTIONS (2)
  - Cataract [Recovering/Resolving]
  - Corneal lesion [Recovering/Resolving]

NARRATIVE: CASE EVENT DATE: 20231027
